FAERS Safety Report 18026264 (Version 9)
Quarter: 2021Q2

REPORT INFORMATION
  Report Type: Report from Study
  Country: US (occurrence: US)
  Receive Date: 20200715
  Receipt Date: 20210424
  Transmission Date: 20210717
  Serious: Yes (Hospitalization, Other)
  Sender: FDA-Public Use
  Company Number: US-SHIRE-US202022278

PATIENT
  Sex: Female

DRUGS (1)
  1. VON WILLEBRAND FACTOR [Suspect]
     Active Substance: VON WILLEBRAND FACTOR HUMAN
     Indication: PRODUCT USED FOR UNKNOWN INDICATION
     Dosage: UNK UNK, QD
     Route: 042

REACTIONS (11)
  - Cardiac disorder [Unknown]
  - Intentional product use issue [Unknown]
  - Epistaxis [Unknown]
  - Dyspnoea [Unknown]
  - Asthma [Unknown]
  - Oropharyngeal pain [Unknown]
  - Exposure during pregnancy [Recovered/Resolved]
  - Labour complication [Unknown]
  - COVID-19 [Unknown]
  - Pneumothorax [Unknown]
  - Postpartum haemorrhage [Unknown]
